FAERS Safety Report 9283658 (Version 2)
Quarter: 2013Q3

REPORT INFORMATION
  Report Type: Spontaneous
  Country: AU (occurrence: AU)
  Receive Date: 20130510
  Receipt Date: 20130715
  Transmission Date: 20140515
  Serious: Yes (Other)
  Sender: FDA-Public Use
  Company Number: AU-AMGEN-AUSSP2013032505

PATIENT
  Age: 80 Year
  Sex: Female

DRUGS (5)
  1. PROLIA [Suspect]
     Indication: OSTEOPOROSIS POSTMENOPAUSAL
     Dosage: 60 MG, Q6MO
     Route: 058
     Dates: start: 20120726
  2. ASPIRIN [Concomitant]
  3. LIPOSTAT [Concomitant]
  4. NATRILIX                           /00340101/ [Concomitant]
  5. TRANDOLAPRIL [Concomitant]

REACTIONS (10)
  - Rash maculo-papular [Recovered/Resolved]
  - Exfoliative rash [Recovered/Resolved]
  - Rash erythematous [Recovered/Resolved]
  - Rash pruritic [Recovered/Resolved]
  - Pain [Unknown]
  - Oral pain [Unknown]
  - Lip swelling [Unknown]
  - Swollen tongue [Unknown]
  - Dysgeusia [Unknown]
  - Hypophagia [Unknown]
